FAERS Safety Report 7414329-6 (Version None)
Quarter: 2011Q2

REPORT INFORMATION
  Report Type: 
  Country: None (occurrence: None)
  Receive Date: 20110414
  Receipt Date: 20110330
  Transmission Date: 20111010
  Serious: Yes (Other)
  Sender: FDA-Public Use
  Company Number: IS-JNJFOC-20101102804

PATIENT
  Sex: Female
  Weight: 63 kg

DRUGS (4)
  1. VITAMIN TAB [Concomitant]
  2. PARACETAMOL [Concomitant]
     Indication: PAIN
  3. REMICADE [Suspect]
     Indication: CROHN'S DISEASE
     Route: 042
  4. RHINOCORT [Concomitant]
     Route: 045

REACTIONS (6)
  - SUPRAVENTRICULAR TACHYCARDIA [None]
  - GESTATIONAL DIABETES [None]
  - DRUG EXPOSURE DURING PREGNANCY [None]
  - BACK PAIN [None]
  - ARTHRALGIA [None]
  - VACUUM EXTRACTOR DELIVERY [None]
